FAERS Safety Report 9779711 (Version 2)
Quarter: 2013Q4

REPORT INFORMATION
  Report Type: Spontaneous
  Country: US (occurrence: US)
  Receive Date: 20131223
  Receipt Date: 20131223
  Transmission Date: 20140711
  Serious: Yes (Other)
  Sender: FDA-Public Use
  Company Number: US-GLAXOSMITHKLINE-A1046530A

PATIENT
  Age: 50 Year
  Sex: Female

DRUGS (3)
  1. VOTRIENT [Suspect]
     Indication: BRAIN NEOPLASM MALIGNANT
     Dosage: 200MG PER DAY
  2. NAUSEA MEDICATION (UNKNOWN) [Suspect]
     Indication: NAUSEA
  3. UNSPECIFIED MEDICATION [Suspect]
     Indication: PRODUCT USED FOR UNKNOWN INDICATION

REACTIONS (2)
  - Cardiac failure congestive [Unknown]
  - Abdominal discomfort [Not Recovered/Not Resolved]
